FAERS Safety Report 9047242 (Version 1)
Quarter: 2013Q1

REPORT INFORMATION
  Report Type: Report from Study
  Country: US (occurrence: US)
  Receive Date: 20130131
  Receipt Date: 20130131
  Transmission Date: 20140127
  Serious: No
  Sender: FDA-Public Use
  Company Number: US-ABBOTT-12P-163-0979156-00

PATIENT
  Age: 53 None
  Sex: Female
  Weight: 77.18 kg

DRUGS (3)
  1. HUMIRA [Suspect]
     Route: 058
     Dates: start: 2009, end: 20120522
  2. HUMIRA [Suspect]
     Route: 058
     Dates: start: 20120701, end: 20120723
  3. PREDNISONE [Concomitant]
     Indication: PAIN

REACTIONS (6)
  - Gait disturbance [Recovered/Resolved]
  - Pain [Recovered/Resolved]
  - Pain [Recovered/Resolved]
  - Streptococcus test positive [Recovered/Resolved]
  - Insomnia [Recovered/Resolved]
  - LE cells [Unknown]
